FAERS Safety Report 7389899-7 (Version None)
Quarter: 2011Q2

REPORT INFORMATION
  Report Type: 
  Country: None (occurrence: None)
  Receive Date: 20110401
  Receipt Date: 20110322
  Transmission Date: 20111010
  Serious: Yes (Hospitalization)
  Sender: FDA-Public Use
  Company Number: GB-TEVA-272735ISR

PATIENT
  Age: 80 Year
  Sex: Female

DRUGS (1)
  1. RISEDRONIC ACID [Suspect]
     Indication: OSTEOPOROSIS
     Route: 048
     Dates: start: 20061102, end: 20110301

REACTIONS (2)
  - FALL [None]
  - STRESS FRACTURE [None]
